FAERS Safety Report 19251371 (Version 1)
Quarter: 2021Q2

REPORT INFORMATION
  Report Type: Other
  Country: BR (occurrence: BR)
  Receive Date: 20210513
  Receipt Date: 20210513
  Transmission Date: 20210717
  Serious: Yes (Other)
  Sender: FDA-Public Use
  Company Number: BR-ROCHE-2823972

PATIENT

DRUGS (2)
  1. BEVACIZUMAB. [Suspect]
     Active Substance: BEVACIZUMAB
     Indication: DIABETIC RETINOPATHY
     Dosage: 0.06 ML (1.5 MG) BEVACIZUMAB ADMINISTERED AT 8?WEEK INTERVALS
     Route: 050
  2. BEVACIZUMAB. [Suspect]
     Active Substance: BEVACIZUMAB
     Indication: VITREOUS HAEMORRHAGE

REACTIONS (1)
  - Tractional retinal detachment [Unknown]
